FAERS Safety Report 11759432 (Version 1)
Quarter: 2015Q4

REPORT INFORMATION
  Report Type: Spontaneous
  Country: US (occurrence: US)
  Receive Date: 20151120
  Receipt Date: 20151120
  Transmission Date: 20160304
  Serious: No
  Sender: FDA-Public Use
  Company Number: US-JNJFOC-20151024238

PATIENT
  Age: 82 Year
  Sex: Female
  Weight: 54.43 kg

DRUGS (7)
  1. WOMENS ROGAINE UNSCENTED [Suspect]
     Active Substance: MINOXIDIL
     Route: 061
  2. WOMENS ROGAINE UNSCENTED [Suspect]
     Active Substance: MINOXIDIL
     Indication: ALOPECIA
     Dosage: 1/2 CAPFUL
     Route: 061
     Dates: start: 2015, end: 2015
  3. BIOTIN [Concomitant]
     Active Substance: BIOTIN
     Indication: ROUTINE HEALTH MAINTENANCE
     Dosage: 5 + YEARS
     Route: 065
  4. HAIR NUTRITION [Concomitant]
     Indication: HAIR GROWTH ABNORMAL
     Dosage: 5+ YEARS
     Route: 065
  5. OTHER THERAPEUTIC PRODUCTS [Concomitant]
     Active Substance: UNSPECIFIED INGREDIENT
     Indication: ROUTINE HEALTH MAINTENANCE
     Dosage: 5+ YEARS
     Route: 065
  6. VITAMINE A [Concomitant]
     Active Substance: RETINOL
     Indication: ROUTINE HEALTH MAINTENANCE
     Dosage: 5+ YEARS
     Route: 065
  7. VITAMIN B12 [Concomitant]
     Active Substance: CYANOCOBALAMIN
     Indication: ROUTINE HEALTH MAINTENANCE
     Dosage: 5 + YEARS
     Route: 065

REACTIONS (2)
  - Application site pruritus [Recovering/Resolving]
  - Product use issue [Recovering/Resolving]

NARRATIVE: CASE EVENT DATE: 2015
